FAERS Safety Report 25332012 (Version 1)
Quarter: 2025Q2

REPORT INFORMATION
  Report Type: Other
  Country: BE (occurrence: BE)
  Receive Date: 20250519
  Receipt Date: 20250519
  Transmission Date: 20250717
  Serious: Yes (Life-Threatening, Hospitalization, Other)
  Sender: OMNIVIUM PHARMACEUTICALS LLC
  Company Number: BE-Omnivium Pharmaceuticals LLC-2176993

PATIENT
  Age: 25 Year
  Sex: Male

DRUGS (2)
  1. NUMBRINO [Suspect]
     Active Substance: COCAINE HYDROCHLORIDE
     Indication: Product used for unknown indication
  2. KETAMINE HYDROCHLORIDE [Suspect]
     Active Substance: KETAMINE HYDROCHLORIDE

REACTIONS (10)
  - Rhabdomyolysis [Unknown]
  - Overdose [Unknown]
  - Abdominal pain [Unknown]
  - Drug abuse [Unknown]
  - Pain [Unknown]
  - Back pain [Unknown]
  - Myositis [Unknown]
  - Compartment syndrome [Unknown]
  - Toxicity to various agents [Unknown]
  - Crush syndrome [Unknown]
